FAERS Safety Report 11653215 (Version 1)
Quarter: 2015Q4

REPORT INFORMATION
  Report Type: Spontaneous
  Country: ES (occurrence: ES)
  Receive Date: 20151022
  Receipt Date: 20151022
  Transmission Date: 20160304
  Serious: Yes (Other)
  Sender: FDA-Public Use
  Company Number: ES-BAYER-2015-442607

PATIENT
  Age: 53 Year
  Sex: Male

DRUGS (7)
  1. METAMIZOL [Concomitant]
     Active Substance: METAMIZOLE SODIUM
     Dosage: 575 MG, TID
     Route: 048
  2. NOCTAMID [Concomitant]
     Active Substance: LORMETAZEPAM
     Dosage: 1 MG, QD
     Route: 048
  3. FENTANYL CITRATE. [Concomitant]
     Active Substance: FENTANYL CITRATE
     Dosage: 400 ?G, BID
     Route: 048
  4. MST-CONTINUS [Concomitant]
     Dosage: 50 MG, TID
     Route: 048
  5. OMEPRAZOL [Concomitant]
     Active Substance: OMEPRAZOLE
     Dosage: 20 MG, QD
     Route: 048
  6. NEXAVAR [Suspect]
     Active Substance: SORAFENIB
     Indication: HEPATIC CANCER
     Dosage: 400 MG, BID
     Route: 048
     Dates: start: 20150610, end: 20150817
  7. PRIMPERAN [Concomitant]
     Active Substance: METOCLOPRAMIDE HYDROCHLORIDE
     Dosage: 5 ML, TID
     Route: 048

REACTIONS (2)
  - Tachycardia [Recovered/Resolved]
  - Hypertension [Recovered/Resolved]

NARRATIVE: CASE EVENT DATE: 20150817
